FAERS Safety Report 4439286-6 (Version None)
Quarter: 2004Q3

REPORT INFORMATION
  Report Type: 
  Country: None (occurrence: None)
  Receive Date: 20040831
  Receipt Date: 20040824
  Transmission Date: 20050211
  Serious: Yes (Death)
  Sender: FDA-Public Use
  Company Number: US-JNJFOC-20040808429

PATIENT
  Age: 5 Month
  Sex: Male
  Weight: 4.536 kg

DRUGS (2)
  1. TYLENOL [Suspect]
     Indication: PYREXIA
     Dosage: 60 MG, 1 IN 1 DAY, ORAL
     Route: 048
     Dates: start: 20040727, end: 20040728
  2. AMOXIL [Concomitant]

REACTIONS (1)
  - APPENDICITIS [None]
